FAERS Safety Report 10300776 (Version 1)
Quarter: 2014Q3

REPORT INFORMATION
  Report Type: Other
  Country: AU (occurrence: AU)
  Receive Date: 20140714
  Receipt Date: 20140714
  Transmission Date: 20150326
  Serious: Yes (Hospitalization)
  Sender: FDA-Public Use
  Company Number: AU-LUPIN PHARMACEUTICALS INC.-2014-01281

PATIENT
  Age: 66 Year
  Sex: Male
  Weight: 80 kg

DRUGS (5)
  1. DABIGATRAN [Suspect]
     Active Substance: DABIGATRAN
     Indication: SUICIDE ATTEMPT
     Route: 048
  2. MOXONIDINE [Suspect]
     Active Substance: MOXONIDINE
     Indication: SUICIDE ATTEMPT
     Route: 048
  3. METOPROLOL [Suspect]
     Active Substance: METOPROLOL
     Indication: SUICIDE ATTEMPT
     Route: 048
  4. AMLODIPINE [Suspect]
     Active Substance: AMLODIPINE BESYLATE
     Indication: SUICIDE ATTEMPT
     Route: 048
  5. OLMESARTAN [Suspect]
     Active Substance: OLMESARTAN
     Indication: SUICIDE ATTEMPT
     Route: 048

REACTIONS (2)
  - Toxicity to various agents [Recovered/Resolved]
  - Overdose [Recovered/Resolved]
